FAERS Safety Report 21655886 (Version 8)
Quarter: 2024Q2

REPORT INFORMATION
  Report Type: Report from Study
  Country: AR (occurrence: AR)
  Receive Date: 20221129
  Receipt Date: 20240507
  Transmission Date: 20240716
  Serious: Yes (Hospitalization, Other)
  Sender: FDA-Public Use
  Company Number: AR-002147023-NVSC2022AR265263

PATIENT
  Age: 51 Year
  Sex: Male

DRUGS (3)
  1. COSENTYX [Suspect]
     Active Substance: SECUKINUMAB
     Indication: Psoriatic arthropathy
     Dosage: 300 MG, QMO (STOPPED IN FEB)
     Route: 058
     Dates: start: 20220330
  2. COSENTYX [Suspect]
     Active Substance: SECUKINUMAB
     Dosage: 300 MG, QMO
     Route: 065
  3. METHOTREXATE [Suspect]
     Active Substance: METHOTREXATE
     Indication: Product used for unknown indication
     Dosage: UNK
     Route: 065

REACTIONS (15)
  - Appendicitis [Unknown]
  - Pancreatitis [Unknown]
  - Peritonitis [Unknown]
  - Movement disorder [Unknown]
  - Arthralgia [Unknown]
  - Abdominal pain upper [Unknown]
  - Drug-induced liver injury [Unknown]
  - Hepatic pain [Unknown]
  - Rectal haemorrhage [Unknown]
  - Gastroenteritis [Unknown]
  - Coagulopathy [Unknown]
  - Pain [Recovering/Resolving]
  - Peripheral swelling [Unknown]
  - Malaise [Recovering/Resolving]
  - Amnesia [Unknown]

NARRATIVE: CASE EVENT DATE: 20221101
